FAERS Safety Report 26151584 (Version 4)
Quarter: 2025Q4

REPORT INFORMATION
  Report Type: Spontaneous
  Country: GB (occurrence: GB)
  Receive Date: 20251212
  Receipt Date: 20251221
  Transmission Date: 20260118
  Serious: Yes (Life-Threatening, Other)
  Sender: NOVARTIS
  Company Number: GB-002147023-NVSC2025GB190279

PATIENT
  Age: 59 Year
  Sex: Male

DRUGS (3)
  1. TEGRETOL [Suspect]
     Active Substance: CARBAMAZEPINE
     Indication: Epilepsy
     Dosage: 600 MG, BID (SLOW-RELEASE)
     Route: 065
  2. PHENOBARBITAL [Concomitant]
     Active Substance: PHENOBARBITAL
     Indication: Product used for unknown indication
     Dosage: UNK
     Route: 065
  3. CLOBAZAM [Concomitant]
     Active Substance: CLOBAZAM
     Indication: Product used for unknown indication
     Dosage: UNK (LIQUID)
     Route: 065

REACTIONS (8)
  - Overdose [Unknown]
  - Depression [Unknown]
  - Suicidal ideation [Unknown]
  - Intentional product use issue [Unknown]
  - Seizure [Unknown]
  - Seizure cluster [Unknown]
  - Generalised tonic-clonic seizure [Unknown]
  - Muscular weakness [Unknown]
